FAERS Safety Report 5063642-9 (Version None)
Quarter: 2006Q3

REPORT INFORMATION
  Report Type: 
  Country: None (occurrence: None)
  Receive Date: 20060727
  Receipt Date: 20060721
  Transmission Date: 20061208
  Serious: Yes (Other)
  Sender: FDA-Public Use
  Company Number: IN-SANOFI-SYNTHELABO-A01200605703

PATIENT
  Age: 12 Year
  Sex: Female

DRUGS (2)
  1. RADIOTHERAPY [Concomitant]
     Indication: GLIOMA
     Dosage: 54 G IN 30 FRACTIONS OVER 6 WEEKS WITH 60 Y-RAY UNIT
  2. CHLOROQUINE PHOSPHATE [Suspect]
     Indication: PROPHYLAXIS
     Dosage: 500 MG FOLLOWED BY 250 MG AFTER 6 H AND 250 MG DAILY X2 DAYS
     Route: 065

REACTIONS (3)
  - DERMATITIS BULLOUS [None]
  - SKIN EXFOLIATION [None]
  - SKIN REACTION [None]
